FAERS Safety Report 6413551-5 (Version None)
Quarter: 2009Q4

REPORT INFORMATION
  Report Type: 
  Country: None (occurrence: None)
  Receive Date: 20091026
  Receipt Date: 20091008
  Transmission Date: 20100525
  Serious: Yes (Hospitalization)
  Sender: FDA-Public Use
  Company Number: PHHY2009JP28929

PATIENT
  Age: 78 Year
  Sex: Male

DRUGS (2)
  1. GLEEVEC [Suspect]
     Indication: CHRONIC MYELOID LEUKAEMIA
     Dosage: 200 MG/DAY
     Route: 048
     Dates: start: 20020101, end: 20080101
  2. GLEEVEC [Suspect]
     Dosage: 200 MG/DAY
     Route: 048
     Dates: start: 20080101

REACTIONS (5)
  - IMPAIRED HEALING [None]
  - NEPHRECTOMY [None]
  - POSTOPERATIVE WOUND INFECTION [None]
  - RENAL CELL CARCINOMA [None]
  - URETERECTOMY [None]
